FAERS Safety Report 8992088 (Version 1)
Quarter: 2012Q4

REPORT INFORMATION
  Report Type: 
  Country: EC (occurrence: EC)
  Receive Date: 20121231
  Receipt Date: 20121231
  Transmission Date: 20130627
  Serious: Yes (Other)
  Sender: FDA-Public Use
  Company Number: PHHY2012EC120602

PATIENT
  Sex: Female

DRUGS (1)
  1. ACLASTA [Suspect]
     Dosage: 5 mg, yearly
     Route: 042
     Dates: start: 20101120

REACTIONS (2)
  - Fall [Unknown]
  - Joint injury [Recovering/Resolving]
